FAERS Safety Report 6660788-6 (Version None)
Quarter: 2010Q1

REPORT INFORMATION
  Report Type: 
  Country: None (occurrence: None)
  Receive Date: 20100331
  Receipt Date: 20100329
  Transmission Date: 20100710
  Serious: Yes (Death, Hospitalization)
  Sender: FDA-Public Use
  Company Number: PL-ROCHE-648900

PATIENT
  Sex: Male
  Weight: 84 kg

DRUGS (32)
  1. TOCILIZUMAB [Suspect]
     Indication: RHEUMATOID ARTHRITIS
     Dosage: REPORTED FORM: INFUSION.LAST DOSE PRIOR TO SAE 15 JULY 2009
     Route: 042
     Dates: start: 20061108
  2. TOCILIZUMAB [Suspect]
     Route: 042
     Dates: start: 20090422
  3. TOCILIZUMAB [Suspect]
     Route: 042
     Dates: start: 20090520
  4. TOCILIZUMAB [Suspect]
     Route: 042
     Dates: start: 20090617
  5. TOCILIZUMAB [Suspect]
     Route: 042
     Dates: start: 20090715
  6. METHOTREXATE [Suspect]
     Indication: RHEUMATOID ARTHRITIS
     Dosage: DOSE REPORTED AS 10-25 MG/WEEK AS PER PROTOCOL
     Route: 065
     Dates: start: 20041202, end: 20090804
  7. PREDNISONE [Concomitant]
     Dosage: DRUG REPORTED: PREDNISON
     Dates: start: 20050412, end: 20090806
  8. PREDNISONE [Concomitant]
     Dates: start: 20090810, end: 20090820
  9. DICLOFENAC [Concomitant]
     Dates: start: 20040506, end: 20090805
  10. AMLODIPINE [Concomitant]
     Dates: start: 20060301, end: 20090805
  11. LANSOPRAZOLE [Concomitant]
     Dates: start: 20040114, end: 20090805
  12. TRAMADOL HCL [Concomitant]
     Dates: start: 20090705, end: 20090705
  13. KETONAL [Concomitant]
     Dates: start: 20090818, end: 20090820
  14. OMEPRAZOLE [Concomitant]
     Dates: start: 20090805, end: 20090820
  15. ACIDUM FOLICUM [Concomitant]
     Dosage: DRUG NAME REPORTED AS AC FOLICUM
     Dates: start: 20090817, end: 20090820
  16. PERINDOPRIL [Concomitant]
     Dosage: TDD REPORTED AS ND
     Dates: start: 20090819, end: 20090820
  17. SPIRONOLACTONE [Concomitant]
     Dates: start: 20090813, end: 20090820
  18. SPIRONOLACTONE [Concomitant]
     Dates: start: 20090809, end: 20090812
  19. ZAFIRON [Concomitant]
     Dosage: DRUG NAME REPORTED AS FORMOTEROL FUMARATE
     Dates: start: 20090817, end: 20090820
  20. TRICEF [Concomitant]
     Dosage: DRUG NAME REPORTED AS TARCEFOXIME, TDD REPORTED AS ND
     Dates: start: 20090819, end: 20090820
  21. METRONIDAZOLE [Concomitant]
     Dosage: TDD REPORTED AS ND
     Dates: start: 20090819, end: 20090820
  22. MORPHINE SULFATE [Concomitant]
     Dosage: TDD REPORTED AS:ND
     Dates: start: 20090819, end: 20090820
  23. PROXACIN [Concomitant]
     Dosage: TDD REPORTED AS ND
     Dates: start: 20090819, end: 20090820
  24. INDOMETHACIN [Concomitant]
     Dates: start: 20090813, end: 20090819
  25. POTASSIUM CHLORATE [Concomitant]
     Dates: start: 20090810, end: 20090813
  26. RAMIPRIL [Concomitant]
     Dates: start: 20090813, end: 20090819
  27. CIPROFLOXACIN [Concomitant]
     Dates: start: 20090807, end: 20090818
  28. AMOXICILLIN AND CLAVULANATE POTASSIUM [Concomitant]
     Dates: start: 20090806
  29. NADROPARINUM CALCICUM [Concomitant]
     Dates: start: 20090806, end: 20090819
  30. HYDROCORTISONE [Concomitant]
     Dates: start: 20090807, end: 20090810
  31. FRUSEMIDE [Concomitant]
     Dates: start: 20090809, end: 20090813
  32. CEFTRIAXONE [Concomitant]
     Dates: start: 20090806, end: 20090818

REACTIONS (4)
  - CARDIO-RESPIRATORY ARREST [None]
  - LARGE CELL CARCINOMA OF THE RESPIRATORY TRACT STAGE UNSPECIFIED [None]
  - PNEUMONIA [None]
  - PULMONARY HAEMORRHAGE [None]
